FAERS Safety Report 8327648-6 (Version None)
Quarter: 2012Q2

REPORT INFORMATION
  Report Type: 
  Country: None (occurrence: None)
  Receive Date: 20120502
  Receipt Date: 20120418
  Transmission Date: 20120825
  Serious: Yes (Life-Threatening, Hospitalization, Other)
  Sender: FDA-Public Use
  Company Number: CN-JNJFOC-20110509443

PATIENT
  Sex: Male
  Weight: 60 kg

DRUGS (5)
  1. UNKNOWN MEDICATION [Concomitant]
     Indication: BACK PAIN
     Route: 048
  2. UNKNOWN MEDICATION [Concomitant]
     Indication: INTERVERTEBRAL DISC PROTRUSION
     Route: 048
  3. ULTRACET [Suspect]
     Indication: INTERVERTEBRAL DISC PROTRUSION
     Dosage: ONE TABLET 3 TIMES DAILY
     Route: 048
     Dates: start: 20110516, end: 20110518
  4. ULTRACET [Suspect]
     Indication: BACK PAIN
     Dosage: ONE TABLET 3 TIMES DAILY
     Route: 048
     Dates: start: 20110516, end: 20110518
  5. UNKNOWN MEDICATION [Concomitant]
     Indication: ANALGESIC THERAPY
     Route: 065

REACTIONS (8)
  - DYSSTASIA [None]
  - MUSCLE TWITCHING [None]
  - HYPERHIDROSIS [None]
  - CHEST DISCOMFORT [None]
  - BODY TEMPERATURE INCREASED [None]
  - PALLOR [None]
  - CARDIAC ARREST [None]
  - SHOCK [None]
